FAERS Safety Report 4811918-X (Version None)
Quarter: 2005Q4

REPORT INFORMATION
  Report Type: 
  Country: None (occurrence: None)
  Receive Date: 20051028
  Receipt Date: 20041018
  Transmission Date: 20060501
  Serious: No
  Sender: FDA-Public Use
  Company Number: US-GLAXOSMITHKLINE-A0530196A

PATIENT
  Age: 10 Year
  Sex: Male
  Weight: 37.7 kg

DRUGS (4)
  1. ADVAIR DISKUS 100/50 [Suspect]
     Indication: ASTHMA
     Dosage: 100MCG TWICE PER DAY
     Route: 055
     Dates: start: 20021001
  2. ACCOLATE [Concomitant]
  3. PREVACID [Concomitant]
  4. NASONEX [Concomitant]

REACTIONS (1)
  - PEAK EXPIRATORY FLOW RATE DECREASED [None]
